FAERS Safety Report 17408051 (Version 1)
Quarter: 2020Q1

REPORT INFORMATION
  Report Type: Spontaneous
  Country: SE (occurrence: SE)
  Receive Date: 20200212
  Receipt Date: 20200212
  Transmission Date: 20200409
  Serious: Yes (Hospitalization)
  Sender: FDA-Public Use
  Company Number: NVSC2020SE033234

PATIENT
  Age: 35 Year
  Sex: Female

DRUGS (4)
  1. MELATONIN [Suspect]
     Active Substance: MELATONIN
     Indication: PRODUCT USED FOR UNKNOWN INDICATION
     Dosage: UNK(2 MELATONIN)
     Route: 048
     Dates: start: 20180815, end: 20180815
  2. OLANZAPINE. [Suspect]
     Active Substance: OLANZAPINE
     Indication: PRODUCT USED FOR UNKNOWN INDICATION
     Dosage: UNK (2 OLANZAPIN)
     Route: 048
     Dates: start: 20180815, end: 20180815
  3. LERGIGAN (PROMETHAZINE HYDROCHLORIDE) [Suspect]
     Active Substance: PROMETHAZINE HYDROCHLORIDE
     Indication: PRODUCT USED FOR UNKNOWN INDICATION
     Dosage: 1250 MG
     Route: 048
     Dates: start: 20180815, end: 20180815
  4. ALVEDON [Suspect]
     Active Substance: ACETAMINOPHEN
     Indication: PRODUCT USED FOR UNKNOWN INDICATION
     Dosage: UNK (4 ALVEDON)
     Route: 048
     Dates: start: 20180815, end: 20180815

REACTIONS (4)
  - Depressed level of consciousness [Unknown]
  - Intentional self-injury [Unknown]
  - Intentional overdose [Unknown]
  - Agitation [Unknown]

NARRATIVE: CASE EVENT DATE: 20180815
